FAERS Safety Report 7894021-4 (Version None)
Quarter: 2011Q4

REPORT INFORMATION
  Report Type: 
  Country: None (occurrence: None)
  Receive Date: 20111104
  Receipt Date: 20111027
  Transmission Date: 20120403
  Serious: Yes (Death, Hospitalization)
  Sender: FDA-Public Use
  Company Number: AU-ACTELION-A-CH2011-56142

PATIENT
  Sex: Male

DRUGS (1)
  1. TRACLEER [Suspect]
     Indication: CARDIAC VALVE DISEASE
     Dosage: 125 MG, BID
     Route: 048
     Dates: start: 20110824

REACTIONS (4)
  - RENAL FAILURE ACUTE [None]
  - DEATH [None]
  - FLUID OVERLOAD [None]
  - RESPIRATORY ARREST [None]
